FAERS Safety Report 7423833-6 (Version None)
Quarter: 2011Q2

REPORT INFORMATION
  Report Type: 
  Country: None (occurrence: None)
  Receive Date: 20110419
  Receipt Date: 20110406
  Transmission Date: 20111010
  Serious: Yes (Other)
  Sender: FDA-Public Use
  Company Number: PHHY2011US28885

PATIENT
  Sex: Female

DRUGS (2)
  1. DIOVAN [Suspect]
  2. TEKTURNA [Suspect]

REACTIONS (3)
  - DRUG DOSE OMISSION [None]
  - HYPERTENSION [None]
  - CEREBROVASCULAR ACCIDENT [None]
